FAERS Safety Report 7650552-3 (Version None)
Quarter: 2011Q3

REPORT INFORMATION
  Report Type: 
  Country: None (occurrence: None)
  Receive Date: 20110802
  Receipt Date: 20110727
  Transmission Date: 20111222
  Serious: Yes (Hospitalization)
  Sender: FDA-Public Use
  Company Number: US-SANOFI-AVENTIS-2011SA039094

PATIENT
  Age: 73 Year
  Sex: Female
  Weight: 49.44 kg

DRUGS (8)
  1. PLAVIX [Suspect]
     Indication: STENT PLACEMENT
     Route: 048
     Dates: start: 20090601, end: 20091101
  2. LISINOPRIL [Concomitant]
  3. TROVAN [Concomitant]
  4. ANTIBIOTICS [Concomitant]
  5. COUMADIN [Suspect]
     Route: 065
  6. LORAZEPAM [Concomitant]
  7. OTHER HORMONES [Concomitant]
  8. AROMASIN [Concomitant]
     Dates: end: 20090101

REACTIONS (2)
  - RECTAL HAEMORRHAGE [None]
  - ARTERIOVENOUS MALFORMATION [None]
